FAERS Safety Report 6653521-5 (Version None)
Quarter: 2010Q1

REPORT INFORMATION
  Report Type: 
  Country: None (occurrence: None)
  Receive Date: 20100323
  Receipt Date: 20100323
  Transmission Date: 20100710
  Serious: No
  Sender: FDA-Public Use
  Company Number: None

PATIENT
  Age: 39 Year
  Sex: Female

DRUGS (9)
  1. ISONIAZID [Suspect]
     Dates: start: 20060526, end: 20061203
  2. ATENOLOL [Concomitant]
  3. TYLENOL-500 [Concomitant]
  4. IBUPROFEN [Concomitant]
  5. ORTHO EVRA [Concomitant]
  6. M.V.I. [Concomitant]
  7. VITAMIN B COMPLEX TAB [Concomitant]
  8. VITAMIN C [Concomitant]
  9. VALERAN ROOT TEA [Concomitant]

REACTIONS (4)
  - FATIGUE [None]
  - HEPATITIS ACUTE [None]
  - LIVER INJURY [None]
  - MALAISE [None]
